FAERS Safety Report 8874867 (Version 2)
Quarter: 2013Q3

REPORT INFORMATION
  Report Type: Report from Study
  Country: CI (occurrence: CI)
  Receive Date: 20121023
  Receipt Date: 20130718
  Transmission Date: 20140515
  Serious: Yes (Other)
  Sender: FDA-Public Use
  Company Number: CI-GILEAD-2012-0062733

PATIENT
  Age: 34 Year
  Sex: Female

DRUGS (8)
  1. EMTRICITABINE/TENOFOVIR DISOPROXIL FUMARATE [Suspect]
     Indication: HIV INFECTION
     Dosage: 1 DF, QD
     Route: 048
     Dates: start: 20110112
  2. LOPINAVIR W/RITONAVIR [Suspect]
     Indication: HIV INFECTION
     Dosage: 2 DF, QD
     Route: 048
     Dates: start: 20110112
  3. EFAVIRENZ [Suspect]
     Indication: HIV INFECTION
     Dosage: UNK
     Dates: start: 20110112
  4. CO-TRIMOXAZOLE [Concomitant]
     Indication: OPPORTUNISTIC INFECTION PROPHYLAXIS
     Dosage: UNK, QD
     Route: 048
     Dates: start: 20081202, end: 20120131
  5. LOPERAMIDE [Concomitant]
     Indication: DIARRHOEA
     Dosage: 2 MG, TID
     Route: 048
     Dates: start: 20120208, end: 20120213
  6. AMOXI-CLAVULANICO [Concomitant]
     Indication: DIARRHOEA
     Dosage: 1 G, BID
     Route: 048
     Dates: start: 20120208, end: 20120218
  7. QUININE [Concomitant]
     Indication: MALARIA
     Dosage: 300 MG, TID
     Route: 048
     Dates: start: 20120208, end: 20120213
  8. PROGESTERONE [Concomitant]
     Indication: ABORTION THREATENED
     Dosage: 100 MG, QD
     Route: 048
     Dates: start: 20120222, end: 20120227

REACTIONS (1)
  - Abortion spontaneous [Recovered/Resolved]
